FAERS Safety Report 4313246-8 (Version None)
Quarter: 2004Q1

REPORT INFORMATION
  Report Type: 
  Country: None (occurrence: None)
  Receive Date: 20040305
  Receipt Date: 20040202
  Transmission Date: 20041129
  Serious: Yes (Other)
  Sender: FDA-Public Use
  Company Number: A-CH2003-03600

PATIENT
  Age: 61 Year
  Sex: Female
  Weight: 43.8 kg

DRUGS (9)
  1. TRACLEER [Suspect]
     Indication: PULMONARY HYPERTENSION
     Dosage: SEE IMAGE
     Route: 048
     Dates: start: 20021128, end: 20030101
  2. TRACLEER [Suspect]
     Indication: PULMONARY HYPERTENSION
     Dosage: SEE IMAGE
     Route: 048
     Dates: start: 20030101, end: 20030501
  3. TRACLEER [Suspect]
     Indication: PULMONARY HYPERTENSION
     Dosage: SEE IMAGE
     Route: 048
     Dates: start: 20030701, end: 20030801
  4. TRACLEER [Suspect]
     Indication: PULMONARY HYPERTENSION
     Dosage: SEE IMAGE
     Route: 048
     Dates: start: 20030801, end: 20031006
  5. TRACLEER [Suspect]
     Indication: PULMONARY HYPERTENSION
     Dosage: SEE IMAGE
     Route: 048
     Dates: start: 20031006, end: 20031113
  6. TRACLEER [Suspect]
     Indication: PULMONARY HYPERTENSION
     Dosage: SEE IMAGE
     Route: 048
     Dates: start: 20031114
  7. DIGOXIN [Concomitant]
  8. DIURETICS [Concomitant]
  9. CALCIUM CHANNEL BLOCKERS [Concomitant]

REACTIONS (4)
  - ALANINE AMINOTRANSFERASE INCREASED [None]
  - ASPARTATE AMINOTRANSFERASE INCREASED [None]
  - FEELING ABNORMAL [None]
  - LIVER FUNCTION TEST ABNORMAL [None]
